FAERS Safety Report 5884695-1 (Version None)
Quarter: 2008Q3

REPORT INFORMATION
  Report Type: 
  Country: None (occurrence: None)
  Receive Date: 20080911
  Receipt Date: 20080829
  Transmission Date: 20090109
  Serious: Yes (Hospitalization)
  Sender: FDA-Public Use
  Company Number: 2008AL010244

PATIENT
  Age: 59 Year
  Sex: Female

DRUGS (5)
  1. DICLOFENAC SODIUM [Suspect]
     Indication: DRUG USE FOR UNKNOWN INDICATION
     Dosage: 75 MG;QD;PO
     Route: 048
     Dates: end: 20080806
  2. ESCITALOPRAM [Concomitant]
  3. QUETIAPINE FUMARATE [Concomitant]
  4. PRAMIPEXOLE DIHYDROCHLORIDE [Concomitant]
  5. DIHYDROCHLORIDE [Concomitant]

REACTIONS (1)
  - GASTRIC ULCER [None]
